FAERS Safety Report 23902962 (Version 1)
Quarter: 2024Q2

REPORT INFORMATION
  Report Type: Other
  Country: CA (occurrence: CA)
  Receive Date: 20240527
  Receipt Date: 20240527
  Transmission Date: 20240716
  Serious: Yes (Other)
  Sender: FDA-Public Use
  Company Number: CA-APOTEX-2024AP006125

PATIENT
  Sex: Female

DRUGS (3)
  1. PREGABALIN [Interacting]
     Active Substance: PREGABALIN
     Indication: Back pain
     Dosage: UNK
     Route: 050
  2. AMANTADINE [Interacting]
     Active Substance: AMANTADINE
     Indication: Back pain
     Dosage: UNK
     Route: 050
  3. TYSABRI [Interacting]
     Active Substance: NATALIZUMAB
     Indication: Multiple sclerosis
     Dosage: 300 MILLIGRAM, 1 EVERY 6 WEEKS
     Route: 050

REACTIONS (2)
  - Depression suicidal [Not Recovered/Not Resolved]
  - Drug interaction [Not Recovered/Not Resolved]
